FAERS Safety Report 5673878-1 (Version None)
Quarter: 2008Q2

REPORT INFORMATION
  Report Type: 
  Country: None (occurrence: None)
  Receive Date: 20080226
  Receipt Date: 20070123
  Transmission Date: 20081010
  Serious: Yes (Other)
  Sender: FDA-Public Use
  Company Number: 479609

PATIENT
  Sex: 0

DRUGS (1)
  1. ACCUTANE (ISOTRETINOIN) [Suspect]
     Indication: DRUG USE FOR UNKNOWN INDICATION
     Dosage: 40 MG DAILY
     Dates: start: 20060907, end: 20061219

REACTIONS (1)
  - PREGNANCY [None]
